FAERS Safety Report 9052868 (Version 1)
Quarter: 2013Q1

REPORT INFORMATION
  Report Type: Spontaneous
  Country: IT (occurrence: IT)
  Receive Date: 20130207
  Receipt Date: 20130207
  Transmission Date: 20140127
  Serious: Yes (Other)
  Sender: FDA-Public Use
  Company Number: IT-ENDO PHARMACEUTICALS INC.-FRVA20130004

PATIENT
  Age: 47 None
  Sex: Female

DRUGS (1)
  1. FROVA [Suspect]
     Indication: HEADACHE
     Route: 048
     Dates: start: 20130109, end: 20130109

REACTIONS (1)
  - Angle closure glaucoma [Recovering/Resolving]
